FAERS Safety Report 13106711 (Version 2)
Quarter: 2017Q1

REPORT INFORMATION
  Report Type: Other
  Country: US (occurrence: US)
  Receive Date: 20170111
  Receipt Date: 20170117
  Transmission Date: 20170428
  Serious: No
  Sender: FDA-Public Use
  Company Number: US-SHIRE-US201619812

PATIENT
  Age: 73 Year
  Sex: Female
  Weight: 79.37 kg

DRUGS (5)
  1. REFRESH OPTIVE ADVANCED            /07868701/ [Concomitant]
     Indication: DRY EYE
     Dosage: (1-2) 2 GTT BOTH EYES, 4X/DAY:QID
     Route: 047
  2. XIIDRA [Suspect]
     Active Substance: LIFITEGRAST
     Indication: DRY EYE
     Dosage: 1 GTT (5%), 2X/DAY:BID; ( BOTH EYES), BID
     Route: 047
     Dates: start: 201611, end: 201611
  3. OCUVITE [Concomitant]
     Active Substance: VITAMINS
     Indication: DRY EYE
     Dosage: UNK, 1X/DAY:QD; REPORTED AS 1-2 SOFT GEL PO DAILY
     Route: 048
  4. MURO 128 [Concomitant]
     Active Substance: SODIUM CHLORIDE
     Indication: DRY EYE
     Dosage: UNK (5%), 1X/DAY:QD
     Route: 047
  5. SYSTANE BALANCE [Concomitant]
     Active Substance: PROPYLENE GLYCOL
     Indication: DRY EYE
     Dosage: UNK UNK (0.6%), 4X/DAY:QID
     Route: 047

REACTIONS (1)
  - Instillation site reaction [Recovered/Resolved]

NARRATIVE: CASE EVENT DATE: 201611
